FAERS Safety Report 24641071 (Version 2)
Quarter: 2025Q1

REPORT INFORMATION
  Report Type: Report from Study
  Country: CA (occurrence: CA)
  Receive Date: 20241120
  Receipt Date: 20250211
  Transmission Date: 20250409
  Serious: Yes (Other)
  Sender: AUROBINDO
  Company Number: CA-AUROBINDO-AUR-APL-2024-001053

PATIENT
  Age: 25 Year
  Sex: Female

DRUGS (8)
  1. LEVETIRACETAM [Suspect]
     Active Substance: LEVETIRACETAM
     Indication: Seizure
     Route: 065
  2. LACOSAMIDE [Suspect]
     Active Substance: LACOSAMIDE
     Indication: Seizure
     Route: 065
  3. LAMOTRIGINE [Suspect]
     Active Substance: LAMOTRIGINE
     Indication: Seizure
     Route: 065
  4. TOPIRAMATE [Suspect]
     Active Substance: TOPIRAMATE
     Indication: Seizure
     Route: 065
  5. CARBAMAZEPINE [Suspect]
     Active Substance: CARBAMAZEPINE
     Indication: Seizure
     Route: 065
  6. CLOBAZAM [Suspect]
     Active Substance: CLOBAZAM
     Indication: Seizure
     Route: 065
  7. FYCOMPA [Suspect]
     Active Substance: PERAMPANEL
     Indication: Seizure
     Route: 065
  8. VALPROIC ACID [Suspect]
     Active Substance: VALPROIC ACID
     Indication: Seizure
     Route: 065

REACTIONS (2)
  - Drug resistance [Unknown]
  - Drug ineffective [Unknown]
